FAERS Safety Report 4863612-7 (Version None)
Quarter: 2005Q4

REPORT INFORMATION
  Report Type: 
  Country: None (occurrence: None)
  Receive Date: 20051222
  Receipt Date: 20050523
  Transmission Date: 20060501
  Serious: No
  Sender: FDA-Public Use
  Company Number: US-GLAXOSMITHKLINE-A0559773A

PATIENT
  Age: 60 Year
  Sex: Female

DRUGS (2)
  1. FLONASE [Suspect]
     Dosage: 2PUFF PER DAY
     Route: 045
     Dates: start: 20050308, end: 20050308
  2. AMOXICILLIN [Concomitant]

REACTIONS (4)
  - ERYTHEMA [None]
  - NASAL DISCOMFORT [None]
  - SCAR [None]
  - SKIN BURNING SENSATION [None]
